FAERS Safety Report 6426275-5 (Version None)
Quarter: 2009Q4

REPORT INFORMATION
  Report Type: 
  Country: None (occurrence: None)
  Receive Date: 20091104
  Receipt Date: 20091027
  Transmission Date: 20100525
  Serious: Yes (Other)
  Sender: FDA-Public Use
  Company Number: US-ELI_LILLY_AND_COMPANY-US200910007281

PATIENT
  Age: 68 Year
  Sex: Male

DRUGS (2)
  1. ALIMTA [Suspect]
     Dosage: 23160 MG, CUMULATIVE
     Dates: start: 20080425, end: 20090901
  2. COUMADIN [Concomitant]

REACTIONS (1)
  - ENCEPHALOPATHY [None]
